FAERS Safety Report 5776021-3 (Version None)
Quarter: 2008Q2

REPORT INFORMATION
  Report Type: 
  Country: None (occurrence: None)
  Receive Date: 20080617
  Receipt Date: 20080605
  Transmission Date: 20081010
  Serious: Yes (Life-Threatening)
  Sender: FDA-Public Use
  Company Number: DE-VALEANT-2008VX001260

PATIENT
  Age: 75 Year
  Sex: Female
  Weight: 50 kg

DRUGS (9)
  1. DALMADORM ^ICN^ [Suspect]
     Route: 048
  2. HYDROXYZINUM [Suspect]
     Route: 048
  3. CETIRIZINE HCL [Suspect]
     Route: 048
  4. DIAZEPAM [Suspect]
     Route: 048
  5. EUTHYROX [Suspect]
     Route: 048
  6. NOVALGIN [Suspect]
     Route: 048
  7. TARGIN [Suspect]
     Route: 048
  8. TRAMADOL RATIOPHARM [Suspect]
     Route: 048
  9. ZOLDEM [Suspect]
     Route: 048

REACTIONS (6)
  - BRADYPNOEA [None]
  - CARDIAC ARREST [None]
  - COLONIC ATONY [None]
  - COMA [None]
  - MULTIPLE DRUG OVERDOSE [None]
  - SUICIDE ATTEMPT [None]
